FAERS Safety Report 5492016-1 (Version None)
Quarter: 2007Q4

REPORT INFORMATION
  Report Type: 
  Country: None (occurrence: None)
  Receive Date: 20071022
  Receipt Date: 20071018
  Transmission Date: 20080405
  Serious: Yes (Hospitalization)
  Sender: FDA-Public Use
  Company Number: D0054857A

PATIENT
  Age: 4 Year
  Sex: Male
  Weight: 15 kg

DRUGS (1)
  1. SULTANOL [Suspect]
     Indication: ACCIDENTAL EXPOSURE
     Dosage: 2ML SINGLE DOSE
     Route: 055
     Dates: start: 20070918, end: 20070918

REACTIONS (3)
  - ACCIDENTAL EXPOSURE [None]
  - AGITATION [None]
  - TACHYCARDIA [None]
